FAERS Safety Report 9759080 (Version 1)
Quarter: 2013Q4

REPORT INFORMATION
  Report Type: Spontaneous
  Country: DE (occurrence: DE)
  Receive Date: 20131216
  Receipt Date: 20131216
  Transmission Date: 20140711
  Serious: Yes (Death)
  Sender: FDA-Public Use
  Company Number: DE-ASTELLAS-2013EU010834

PATIENT
  Age: 88 Year
  Sex: Male

DRUGS (1)
  1. XTANDI [Suspect]
     Dosage: UNK
     Route: 065

REACTIONS (4)
  - Hypertension [Fatal]
  - Convulsion [Fatal]
  - Liver function test abnormal [Fatal]
  - Renal function test abnormal [Fatal]
